FAERS Safety Report 5689249-8 (Version None)
Quarter: 2008Q1

REPORT INFORMATION
  Report Type: 
  Country: None (occurrence: None)
  Receive Date: 20080331
  Receipt Date: 20080319
  Transmission Date: 20080703
  Serious: Yes (Death)
  Sender: FDA-Public Use
  Company Number: MX-ROCHE-546878

PATIENT
  Age: 23 Year
  Sex: Male

DRUGS (4)
  1. VALCYTE [Suspect]
     Indication: TRANSPLANT
     Route: 048
     Dates: start: 20070501
  2. 1 CONCOMITANT DRUG [Concomitant]
     Dosage: DRUG NAME REPORTED: MOFENOLIC ACID.
  3. PREDNISONA [Concomitant]
  4. TACROLIMUS [Concomitant]

REACTIONS (3)
  - BONE MARROW FAILURE [None]
  - LEUKOPENIA [None]
  - TRANSPLANT REJECTION [None]
